FAERS Safety Report 8802868 (Version 2)
Quarter: 2014Q1

REPORT INFORMATION
  Report Type: Report from Study
  Country: US (occurrence: US)
  Receive Date: 20120921
  Receipt Date: 20140216
  Transmission Date: 20141002
  Serious: Yes (Death)
  Sender: FDA-Public Use
  Company Number: US-ROCHE-1104334

PATIENT
  Sex: Male
  Weight: 188 kg

DRUGS (14)
  1. AVASTIN [Suspect]
     Indication: LUNG NEOPLASM MALIGNANT
     Dosage: IN 100 ML NORMAL SALINE.
     Route: 042
     Dates: start: 20100518
  2. AVASTIN [Suspect]
     Route: 042
     Dates: start: 20100608
  3. AVASTIN [Suspect]
     Route: 042
     Dates: start: 20100730
  4. AVASTIN [Suspect]
     Route: 042
     Dates: start: 20100817
  5. ERLOTINIB [Suspect]
     Indication: LUNG NEOPLASM MALIGNANT
     Route: 065
  6. PEMETREXED [Concomitant]
     Route: 042
  7. VITAMIN B12 [Concomitant]
     Route: 030
  8. DOCETAXEL [Concomitant]
     Route: 042
  9. PALONOSETRON [Concomitant]
     Route: 042
  10. DECADRON [Concomitant]
     Route: 048
  11. NEULASTA [Concomitant]
     Route: 065
  12. CARBOPLATIN [Concomitant]
     Route: 042
  13. ONDANSETRON [Concomitant]
     Route: 042
  14. DEXAMETHASONE [Concomitant]
     Route: 042

REACTIONS (5)
  - Death [Fatal]
  - Mobility decreased [Unknown]
  - Decreased appetite [Recovering/Resolving]
  - Fatigue [Unknown]
  - Disease progression [Unknown]
